FAERS Safety Report 9353362 (Version 1)
Quarter: 2013Q2

REPORT INFORMATION
  Report Type: Spontaneous
  Country: US (occurrence: None)
  Receive Date: 20130617
  Receipt Date: 20130617
  Transmission Date: 20140414
  Serious: No
  Sender: FDA-Public Use
  Company Number: None

PATIENT
  Age: 78 Year
  Sex: Female
  Weight: 70.6 kg

DRUGS (1)
  1. LINEZOLID [Suspect]
     Indication: URINARY TRACT INFECTION
     Dosage: 600 MG BID IV
     Route: 042
     Dates: start: 20130607, end: 20130607

REACTIONS (4)
  - Dyspnoea [None]
  - Head titubation [None]
  - Tremor [None]
  - Lip swelling [None]
